FAERS Safety Report 5507473-1 (Version None)
Quarter: 2007Q4

REPORT INFORMATION
  Report Type: 
  Country: None (occurrence: None)
  Receive Date: 20071102
  Receipt Date: 20071018
  Transmission Date: 20080405
  Serious: Yes (Other)
  Sender: FDA-Public Use
  Company Number: 6038364

PATIENT
  Age: 76 Year
  Sex: Female

DRUGS (4)
  1. CONCOR (TABLET) (BISOPROLOL FUMARATE) [Suspect]
     Indication: HYPERTENSION
     Dosage: 5 MG, ORAL
     Route: 048
     Dates: start: 20040101
  2. NORVASC (TABLET) (AMLODIPINE) [Concomitant]
  3. PLAVIX [Concomitant]
  4. PADMED CIRCOSAN (TABLET) (CAMPHOR,  CALCIUM SULFATE, ACONITUM NAPELLUS [Concomitant]

REACTIONS (1)
  - SCLERODERMA [None]
